FAERS Safety Report 6635719-5 (Version None)
Quarter: 2010Q1

REPORT INFORMATION
  Report Type: 
  Country: None (occurrence: None)
  Receive Date: 20100312
  Receipt Date: 20100312
  Transmission Date: 20100710
  Serious: Yes (Hospitalization, Disabling)
  Sender: FDA-Public Use
  Company Number: None

PATIENT
  Sex: Female
  Weight: 76.6579 kg

DRUGS (23)
  1. FOSAMAX [Suspect]
     Indication: OSTEOPENIA
     Dosage: 10 MG DAILY PO
     Route: 048
     Dates: start: 19970801, end: 20060501
  2. FOSAMAX [Suspect]
     Indication: OSTEOPOROSIS
     Dosage: 10 MG DAILY PO
     Route: 048
     Dates: start: 19970801, end: 20060501
  3. FOSAMAX PLUS D [Suspect]
     Dosage: 70 WEEKLY PO
     Route: 048
     Dates: start: 20060502, end: 20091230
  4. THEOPHYLLINE [Concomitant]
  5. UNIPHY [Concomitant]
  6. LIPITOR [Concomitant]
  7. PRAVASTATIN SODIUM [Concomitant]
  8. MEDROL [Concomitant]
  9. NASACORT [Concomitant]
  10. ADVAIR DISKUS 100/50 [Concomitant]
  11. FLOVENT [Concomitant]
  12. SINGULAIR [Concomitant]
  13. ALBUTEROL [Concomitant]
  14. COZAAR [Concomitant]
  15. CARTIA XT [Concomitant]
  16. SPIRONOLACTONE [Concomitant]
  17. LODINE [Concomitant]
  18. NAPROXEN [Concomitant]
  19. IBUPROFEN [Concomitant]
  20. TYLENOL W/ CODEINE [Concomitant]
  21. DILAUDID PILLS [Concomitant]
  22. CA WITH D AND MULTIVITAMINS [Concomitant]
  23. VIT D CAPS [Concomitant]

REACTIONS (4)
  - FEMUR FRACTURE [None]
  - IMPAIRED HEALING [None]
  - PERIPROSTHETIC FRACTURE [None]
  - PRODUCT SUBSTITUTION ISSUE [None]
